FAERS Safety Report 24727662 (Version 1)
Quarter: 2024Q4

REPORT INFORMATION
  Report Type: Spontaneous
  Country: US (occurrence: None)
  Receive Date: 20241212
  Receipt Date: 20241212
  Transmission Date: 20250115
  Serious: No
  Sender: Public
  Company Number: None

PATIENT
  Age: 38 Year
  Sex: Female
  Weight: 108 kg

DRUGS (11)
  1. ZEPBOUND [Suspect]
     Active Substance: TIRZEPATIDE
     Indication: Obesity
     Dosage: OTHER FREQUENCY : WEEKLY;?
     Route: 058
     Dates: start: 20240601
  2. CETIRIZINE HYDROCHLORIDE [Concomitant]
     Active Substance: CETIRIZINE HYDROCHLORIDE
  3. MONTELUKAST SODIUM [Concomitant]
     Active Substance: MONTELUKAST\MONTELUKAST SODIUM
  4. PANTOPRAZOLE [Concomitant]
     Active Substance: PANTOPRAZOLE
  5. FAMOTIDINE [Concomitant]
     Active Substance: FAMOTIDINE
  6. ZEPBOUND [Concomitant]
     Active Substance: TIRZEPATIDE
  7. TIZANIDINE [Concomitant]
     Active Substance: TIZANIDINE
  8. GABAPENTIN [Concomitant]
     Active Substance: GABAPENTIN
  9. NURTEC ODT [Concomitant]
     Active Substance: RIMEGEPANT SULFATE
  10. VITAMIN D NOS [Concomitant]
     Active Substance: CHOLECALCIFEROL\ERGOCALCIFEROL
  11. VITAMINS [Concomitant]
     Active Substance: VITAMINS

REACTIONS (1)
  - Allodynia [None]

NARRATIVE: CASE EVENT DATE: 20241111
